FAERS Safety Report 19962669 (Version 4)
Quarter: 2021Q4

REPORT INFORMATION
  Report Type: Spontaneous
  Country: JP (occurrence: JP)
  Receive Date: 20211018
  Receipt Date: 20211217
  Transmission Date: 20220303
  Serious: Yes (Other)
  Sender: FDA-Public Use
  Company Number: JP-NOVARTISPH-NVSJ2021JP016881

PATIENT
  Age: 81 Year
  Sex: Female
  Weight: 48.5 kg

DRUGS (4)
  1. BEOVU [Suspect]
     Active Substance: BROLUCIZUMAB-DBLL
     Indication: Age-related macular degeneration
     Dosage: 6 MG
     Route: 031
     Dates: start: 20200617, end: 20200617
  2. BEOVU [Suspect]
     Active Substance: BROLUCIZUMAB-DBLL
     Indication: Polypoidal choroidal vasculopathy
     Dosage: 6 MG
     Route: 031
  3. BEOVU [Suspect]
     Active Substance: BROLUCIZUMAB-DBLL
     Dosage: 6 MG
     Route: 031
  4. BEOVU [Suspect]
     Active Substance: BROLUCIZUMAB-DBLL
     Dosage: 6 MG
     Route: 031
     Dates: start: 20210922, end: 20210922

REACTIONS (4)
  - Breast cancer [Unknown]
  - Physical deconditioning [Unknown]
  - Blindness transient [Unknown]
  - Macular oedema [Unknown]

NARRATIVE: CASE EVENT DATE: 20210922
